FAERS Safety Report 6850864-7 (Version None)
Quarter: 2010Q3

REPORT INFORMATION
  Report Type: 
  Country: None (occurrence: None)
  Receive Date: 20100716
  Receipt Date: 20071023
  Transmission Date: 20110219
  Serious: No
  Sender: FDA-Public Use
  Company Number: US-PFIZER INC-2007089797

PATIENT
  Sex: Female
  Weight: 52.6 kg

DRUGS (4)
  1. CHANTIX [Suspect]
     Indication: SMOKING CESSATION THERAPY
     Route: 048
     Dates: start: 20071022
  2. XYREM [Concomitant]
     Route: 048
     Dates: start: 20060101
  3. ACCUTANE [Concomitant]
     Route: 048
     Dates: start: 20060101
  4. CYMBALTA [Concomitant]
     Route: 048
     Dates: start: 20060101

REACTIONS (1)
  - DIZZINESS [None]
